FAERS Safety Report 9640279 (Version 2)
Quarter: 2015Q1

REPORT INFORMATION
  Report Type: Spontaneous
  Country: JP (occurrence: JP)
  Receive Date: 20131023
  Receipt Date: 20150226
  Transmission Date: 20150721
  Serious: Yes (Other)
  Sender: FDA-Public Use
  Company Number: JP-RANBAXY-2013R1-74532

PATIENT
  Age: 40 Year
  Sex: Female

DRUGS (2)
  1. LIDOCAINE. [Concomitant]
     Active Substance: LIDOCAINE
     Indication: TRIGGER FINGER
     Dosage: 0.5 ML, MONTHLY (TOTAL 30 TIMES)
     Route: 065
  2. TRIAMCINOLONE [Suspect]
     Active Substance: TRIAMCINOLONE
     Indication: TRIGGER FINGER
     Dosage: 20 ML, MONTHLY (TOTAL 30 TIMES)
     Route: 065

REACTIONS (2)
  - Muscle rupture [Recovered/Resolved]
  - Joint contracture [Recovering/Resolving]
